FAERS Safety Report 6640718-3 (Version None)
Quarter: 2010Q1

REPORT INFORMATION
  Report Type: 
  Country: None (occurrence: None)
  Receive Date: 20100318
  Receipt Date: 20100305
  Transmission Date: 20100710
  Serious: Yes (Hospitalization, Other)
  Sender: FDA-Public Use
  Company Number: US-ELI_LILLY_AND_COMPANY-US200910004061

PATIENT
  Sex: Female
  Weight: 97.052 kg

DRUGS (24)
  1. BYETTA [Suspect]
     Dosage: UNK, UNK
     Dates: start: 20061201, end: 20071226
  2. BYETTA [Suspect]
     Dates: start: 20080201, end: 20080301
  3. BYETTA [Suspect]
     Dates: start: 20081201, end: 20090301
  4. FLONASE [Concomitant]
  5. ALBUTEROL [Concomitant]
  6. NORVASC [Concomitant]
  7. PREMARIN [Concomitant]
  8. AMBIEN [Concomitant]
     Indication: SLEEP DISORDER
  9. CHLORDIAZEPOXIDE [Concomitant]
  10. FOLIC ACID [Concomitant]
  11. DARVOCET [Concomitant]
  12. CALCIUM [Concomitant]
  13. VITAMIN D [Concomitant]
  14. DIABETA [Concomitant]
  15. JANUMET [Concomitant]
  16. REGLAN [Concomitant]
  17. GLYBURIDE [Concomitant]
  18. JANUVIA [Concomitant]
  19. METFORMIN HCL [Concomitant]
  20. LIPITOR [Concomitant]
  21. SANCTURA [Concomitant]
  22. ARAVA [Concomitant]
  23. METHOTREXATE [Concomitant]
  24. HYDROXYCHLOROQUINE SULFATE [Concomitant]

REACTIONS (3)
  - PANCREATITIS ACUTE [None]
  - PANCREATITIS RELAPSING [None]
  - RENAL DISORDER [None]
